FAERS Safety Report 10609667 (Version 1)
Quarter: 2014Q4

REPORT INFORMATION
  Report Type: Spontaneous
  Country: US (occurrence: None)
  Receive Date: 20141124
  Receipt Date: 20141124
  Transmission Date: 20150529
  Serious: Yes (Death)
  Sender: FDA-Public Use
  Company Number: KAD201411-001478

PATIENT
  Sex: Male
  Weight: 78.92 kg

DRUGS (11)
  1. LUNESTA (ESZOPICLONE) (ESZOPICLONE) [Concomitant]
  2. SERTRALINE [Concomitant]
     Active Substance: SERTRALINE HYDROCHLORIDE
  3. SOVALDI [Suspect]
     Active Substance: SOFOSBUVIR
     Indication: HEPATITIS C
     Route: 048
     Dates: start: 20140812, end: 20141023
  4. METOPROLOL TARTRATE (METOPROLOL TARTRATE) [Concomitant]
  5. PRILOSEC [Concomitant]
     Active Substance: OMEPRAZOLE MAGNESIUM
  6. RIBASPHERE RIBAPAK [Suspect]
     Active Substance: RIBAVIRIN
     Indication: HEPATITIS C
     Dosage: TABLET 600 MG AM AND PM
     Dates: start: 20140812, end: 201409
  7. AMLODIPINE [Concomitant]
     Active Substance: AMLODIPINE BESYLATE
  8. ECOTRIN (ASPIRIN) (ASPIRIN) [Concomitant]
  9. SIMVASTATIN (SIMVASTATIN) (SIMVASTATIN) [Concomitant]
     Active Substance: SIMVASTATIN
  10. LOSARTAN (LOSARTAN) (LOSARTAN) [Concomitant]
     Active Substance: LOSARTAN
  11. VIAGRA (SILDENAFIL CITRATE) (SILDENAFIL CITRATE) [Concomitant]

REACTIONS (5)
  - Dyspnoea [None]
  - Loss of consciousness [None]
  - Cardiac arrest [None]
  - Haemoglobin decreased [None]
  - Chest discomfort [None]
